FAERS Safety Report 25802411 (Version 1)
Quarter: 2025Q3

REPORT INFORMATION
  Report Type: Spontaneous
  Country: CN (occurrence: CN)
  Receive Date: 20250915
  Receipt Date: 20250915
  Transmission Date: 20251020
  Serious: Yes (Hospitalization, Other)
  Sender: PANACEA BIOTEC PHARMA LIMITED
  Company Number: CN-PBT-010748

PATIENT
  Age: 45 Year
  Sex: Male

DRUGS (3)
  1. TACROLIMUS [Suspect]
     Active Substance: TACROLIMUS
     Indication: Myasthenia gravis
     Route: 065
     Dates: start: 202302
  2. METHYLPREDNISOLONE [Suspect]
     Active Substance: METHYLPREDNISOLONE
     Indication: Myasthenia gravis
     Route: 065
     Dates: start: 202302
  3. PYRIDOSTIGMINE [Suspect]
     Active Substance: PYRIDOSTIGMINE
     Indication: Myasthenia gravis
     Route: 065
     Dates: start: 202302

REACTIONS (13)
  - Myasthenia gravis crisis [Unknown]
  - Stenotrophomonas infection [Recovering/Resolving]
  - Enterococcal infection [Recovering/Resolving]
  - Pneumocystis jirovecii infection [Recovering/Resolving]
  - Cytomegalovirus infection [Recovering/Resolving]
  - Histoplasmosis [Recovering/Resolving]
  - Penicillium infection [Recovering/Resolving]
  - Pneumonia [Recovering/Resolving]
  - Gastrointestinal haemorrhage [Recovering/Resolving]
  - Blood loss anaemia [Recovering/Resolving]
  - H1N1 influenza [Recovering/Resolving]
  - Drug ineffective [Unknown]
  - Product use in unapproved indication [Unknown]

NARRATIVE: CASE EVENT DATE: 20230101
